FAERS Safety Report 9415687 (Version 3)
Quarter: 2014Q1

REPORT INFORMATION
  Report Type: Spontaneous
  Country: US (occurrence: US)
  Receive Date: 20130723
  Receipt Date: 20140121
  Transmission Date: 20141002
  Serious: Yes (Death)
  Sender: FDA-Public Use
  Company Number: US-B.I. PHARMACEUTICALS,INC./RIDGEFIELD-2013-BI-21644BP

PATIENT
  Age: 60 Year
  Sex: Male

DRUGS (13)
  1. PRADAXA [Suspect]
     Indication: ATRIAL FIBRILLATION
     Dosage: 300 MG
     Route: 048
     Dates: start: 20110721, end: 20110725
  2. CELEXA [Concomitant]
     Dosage: 10 MG
  3. MULTIVITAMIN [Concomitant]
  4. LANTUS [Concomitant]
  5. ZOCOR [Concomitant]
  6. ADDERALL [Concomitant]
     Dosage: 20 MG
  7. LISINOPRIL [Concomitant]
     Dosage: 5 MG
  8. PREVACID [Concomitant]
     Dosage: 5 MG
  9. DIGOXIN [Concomitant]
     Dosage: 0.25 MG
  10. COREG [Concomitant]
     Dosage: 12.5 MG
  11. BUSPAR [Concomitant]
     Dosage: 40 MG
  12. NOVOLOG [Concomitant]
  13. MEGACE [Concomitant]

REACTIONS (3)
  - Cardiac arrest [Fatal]
  - Acute respiratory failure [Fatal]
  - Ventricular fibrillation [Fatal]
